FAERS Safety Report 4965125-0 (Version None)
Quarter: 2006Q2

REPORT INFORMATION
  Report Type: 
  Country: None (occurrence: None)
  Receive Date: 20060406
  Receipt Date: 20060327
  Transmission Date: 20061013
  Serious: Yes (Other)
  Sender: FDA-Public Use
  Company Number: PHBS2006BR04737

PATIENT
  Age: 56 Year
  Sex: Female
  Weight: 68 kg

DRUGS (1)
  1. ZADITEN [Suspect]
     Indication: HYPERSENSITIVITY
     Dosage: 1 DRP/DAY
     Dates: start: 20060323

REACTIONS (3)
  - ASTHMA [None]
  - FATIGUE [None]
  - HYPERSENSITIVITY [None]
